FAERS Safety Report 7372151-3 (Version None)
Quarter: 2011Q1

REPORT INFORMATION
  Report Type: 
  Country: None (occurrence: None)
  Receive Date: 20110225
  Receipt Date: 20101130
  Transmission Date: 20110831
  Serious: No
  Sender: FDA-Public Use
  Company Number: 319304

PATIENT
  Age: 67 Year
  Sex: Male

DRUGS (3)
  1. IMMUNE GLOBULIN (HUMAN) [Concomitant]
  2. LIPITOR [Concomitant]
  3. VICTOZA [Suspect]
     Indication: TYPE 2 DIABETES MELLITUS
     Dosage: 1.8 IU, QD, SUBCUTANEOUS
     Route: 058
     Dates: start: 20101001

REACTIONS (2)
  - WEIGHT DECREASED [None]
  - DYSPNOEA [None]
